FAERS Safety Report 20129040 (Version 1)
Quarter: 2021Q4

REPORT INFORMATION
  Report Type: Spontaneous
  Country: US (occurrence: None)
  Receive Date: 20211130
  Receipt Date: 20211130
  Transmission Date: 20220303
  Serious: Yes (Other)
  Sender: FDA-Public Use
  Company Number: US-Hikma Pharmaceuticals USA Inc.-US-H14001-21-05040

PATIENT
  Age: 13 Year
  Sex: Female

DRUGS (3)
  1. METHOTREXATE [Suspect]
     Active Substance: METHOTREXATE
     Indication: Acute lymphocytic leukaemia
     Dosage: UNKNOWN
     Route: 037
  2. PREDNISONE [Suspect]
     Active Substance: PREDNISONE
     Indication: Acute lymphocytic leukaemia
     Dosage: UNKNOWN
     Route: 065
  3. RUXOLITINIB [Suspect]
     Active Substance: RUXOLITINIB
     Indication: Acute lymphocytic leukaemia
     Dosage: 50 MG/M2 TWICE-DAILY FOR 14-DAYS-ON/14-DAYS-OFF/MONTH
     Route: 065

REACTIONS (4)
  - Neurotoxicity [Recovered/Resolved]
  - Pulmonary mass [Unknown]
  - Malnutrition [Unknown]
  - Osteonecrosis [Unknown]
